FAERS Safety Report 25546084 (Version 1)
Quarter: 2025Q3

REPORT INFORMATION
  Report Type: Report from Study
  Country: CA (occurrence: CA)
  Receive Date: 20250712
  Receipt Date: 20250712
  Transmission Date: 20251021
  Serious: Yes (Death)
  Sender: IPSEN BIOPHARMACEUTICALS, INC.
  Company Number: CA-IPSEN Group, Research and Development-2025-16520

PATIENT
  Age: 63 Year
  Sex: Female

DRUGS (11)
  1. LANREOTIDE ACETATE [Suspect]
     Active Substance: LANREOTIDE ACETATE
     Indication: Carcinoid syndrome
     Dates: start: 20190803
  2. SYNTHROID [Concomitant]
     Active Substance: LEVOTHYROXINE SODIUM
  3. ZOPICLONE [Concomitant]
     Active Substance: ZOPICLONE
  4. CLONAZEPAM [Concomitant]
     Active Substance: CLONAZEPAM
  5. OCTREOTIDE [Concomitant]
     Active Substance: OCTREOTIDE
  6. PERINDOPRIL [Concomitant]
     Active Substance: PERINDOPRIL
  7. TELMISARTAN [Concomitant]
     Active Substance: TELMISARTAN
  8. BISOPROLOL [Concomitant]
     Active Substance: BISOPROLOL
  9. Perindopril-Indapamine [Concomitant]
  10. Nefedipine [Concomitant]
  11. HALOPERIDOL [Concomitant]
     Active Substance: HALOPERIDOL

REACTIONS (1)
  - Death [Fatal]

NARRATIVE: CASE EVENT DATE: 20250531
